FAERS Safety Report 6089088-2 (Version None)
Quarter: 2009Q1

REPORT INFORMATION
  Report Type: 
  Country: None (occurrence: None)
  Receive Date: 20090224
  Receipt Date: 20090217
  Transmission Date: 20090719
  Serious: Yes (Hospitalization, Other)
  Sender: FDA-Public Use
  Company Number: JP-JNJFOC-20090201517

PATIENT
  Sex: Male
  Weight: 47 kg

DRUGS (12)
  1. ITRIZOLE [Suspect]
     Route: 048
  2. ITRIZOLE [Suspect]
     Indication: DRUG USE FOR UNKNOWN INDICATION
     Route: 048
  3. ITRIZOLE [Suspect]
     Route: 041
  4. PREDNISOLONE [Concomitant]
     Indication: ORGANISING PNEUMONIA
     Route: 065
  5. BAKTAR [Concomitant]
     Indication: ORGANISING PNEUMONIA
     Route: 048
  6. CLARITHROMYCIN [Concomitant]
     Indication: ATYPICAL MYCOBACTERIAL INFECTION
     Route: 048
  7. AMLODIN [Concomitant]
     Indication: HYPERTENSION
     Route: 048
  8. INNOLET R [Concomitant]
     Indication: DIABETES MELLITUS
     Route: 065
  9. LUPRAC [Concomitant]
     Route: 048
  10. LASIX [Concomitant]
     Route: 048
  11. LASIX [Concomitant]
     Route: 042
  12. TAKEPRON [Concomitant]
     Indication: ORGANISING PNEUMONIA
     Route: 048

REACTIONS (3)
  - DYSPNOEA [None]
  - OEDEMA PERIPHERAL [None]
  - RENAL FAILURE [None]
